FAERS Safety Report 7216852-6 (Version None)
Quarter: 2011Q1

REPORT INFORMATION
  Report Type: 
  Country: None (occurrence: None)
  Receive Date: 20110104
  Receipt Date: 20110104
  Transmission Date: 20110831
  Serious: Yes (Other)
  Sender: FDA-Public Use
  Company Number: None

PATIENT
  Age: 67 Year
  Sex: Female
  Weight: 80.2867 kg

DRUGS (1)
  1. TELNASE 55UG/SPRAY PHARMACY MEDICINE [Suspect]
     Indication: SOMNOLENCE
     Dosage: 2 SPRAYS EA. NOSTRIL EA DAY NASAL
     Route: 045
     Dates: start: 20101101, end: 20101129

REACTIONS (2)
  - DYSGEUSIA [None]
  - ANOSMIA [None]
